FAERS Safety Report 14332957 (Version 1)
Quarter: 2017Q4

REPORT INFORMATION
  Report Type: Spontaneous
  Country: CH (occurrence: CH)
  Receive Date: 20171228
  Receipt Date: 20171228
  Transmission Date: 20180321
  Serious: Yes (Hospitalization, Other)
  Sender: FDA-Public Use
  Company Number: CH-BAYER-2017-245119

PATIENT
  Age: 75 Year
  Sex: Male

DRUGS (7)
  1. TICAGRELOR. [Interacting]
     Active Substance: TICAGRELOR
     Dosage: 180 MG, QD
  2. PANTOPRAZOLE [Concomitant]
     Active Substance: PANTOPRAZOLE
     Dosage: 40 MG,UNK
  3. ENOXAPARIN [Interacting]
     Active Substance: ENOXAPARIN
     Dosage: 4000 UNITS IV UNK
  4. ATORVASTATIN [Concomitant]
     Active Substance: ATORVASTATIN
     Dosage: 80MGUNK
  5. TICAGRELOR. [Interacting]
     Active Substance: TICAGRELOR
     Dosage: 90 MG, BID
  6. ACETYLSALICYLIC ACID({=100 MG) [Suspect]
     Active Substance: ASPIRIN
  7. TIROFIBAN [Concomitant]
     Active Substance: TIROFIBAN
     Dosage: UNK0.4 MG/KG/MIN IN 30MIN

REACTIONS (4)
  - Drug administration error [None]
  - Haematuria [None]
  - Bladder cancer [None]
  - Labelled drug-drug interaction medication error [None]
